FAERS Safety Report 8922862 (Version 2)
Quarter: 2013Q1

REPORT INFORMATION
  Report Type: Spontaneous
  Country: US (occurrence: US)
  Receive Date: 20121125
  Receipt Date: 20130208
  Transmission Date: 20140127
  Serious: No
  Sender: FDA-Public Use
  Company Number: US-009507513-1211USA008206

PATIENT
  Age: 24 Year
  Sex: Female
  Weight: 97.51 kg

DRUGS (2)
  1. IMPLANON [Suspect]
     Indication: CONTRACEPTION
     Dosage: EVERY 3 YEAR
     Route: 059
     Dates: start: 20100202
  2. IMPLANON [Suspect]
     Indication: PROPHYLAXIS

REACTIONS (5)
  - Amenorrhoea [Recovered/Resolved]
  - Metrorrhagia [Unknown]
  - Headache [Unknown]
  - Nausea [Unknown]
  - Off label use [Unknown]
